FAERS Safety Report 4320911-5 (Version None)
Quarter: 2004Q1

REPORT INFORMATION
  Report Type: 
  Country: None (occurrence: None)
  Receive Date: 20040318
  Receipt Date: 20040309
  Transmission Date: 20041129
  Serious: Yes (Other)
  Sender: FDA-Public Use
  Company Number: 203380

PATIENT
  Age: 54 Year
  Sex: Male

DRUGS (3)
  1. RITUXAN [Suspect]
     Indication: NON-HODGKIN'S LYMPHOMA
     Dosage: 600 MG, 1/WEEK, INTRAVENOUS
     Route: 042
     Dates: start: 20031003, end: 20031016
  2. CHLORPHENIRAMINE MALEATE [Concomitant]
  3. HYDROCORTISONE [Concomitant]

REACTIONS (2)
  - CSF PROTEIN INCREASED [None]
  - GUILLAIN-BARRE SYNDROME [None]
